FAERS Safety Report 21920574 (Version 2)
Quarter: 2023Q1

REPORT INFORMATION
  Report Type: Spontaneous
  Country: JP (occurrence: None)
  Receive Date: 20230127
  Receipt Date: 20230314
  Transmission Date: 20230418
  Serious: Yes (Death, Other)
  Sender: FDA-Public Use
  Company Number: 2023A021732

PATIENT
  Age: 74 Year
  Sex: Male
  Weight: 54 kg

DRUGS (3)
  1. NEXIUM [Suspect]
     Active Substance: ESOMEPRAZOLE MAGNESIUM
     Indication: Ulcer
     Route: 048
     Dates: start: 20220812, end: 20220909
  2. PIPERACILLIN SODIUM\TAZOBACTAM SODIUM [Suspect]
     Active Substance: PIPERACILLIN SODIUM\TAZOBACTAM SODIUM
     Indication: Infection
     Route: 042
     Dates: start: 20220809, end: 20220909
  3. VIMPAT [Suspect]
     Active Substance: LACOSAMIDE
     Indication: Seizure prophylaxis
     Route: 048
     Dates: start: 20220826, end: 20220913

REACTIONS (4)
  - White blood cell count decreased [Fatal]
  - Septic shock [Fatal]
  - Pancreatitis [Unknown]
  - Neutrophil count decreased [Unknown]

NARRATIVE: CASE EVENT DATE: 20220101
